FAERS Safety Report 9179036 (Version 2)
Quarter: 2013Q3

REPORT INFORMATION
  Report Type: Report from Study
  Country: JP (occurrence: JP)
  Receive Date: 20130321
  Receipt Date: 20130729
  Transmission Date: 20140515
  Serious: Yes (Other)
  Sender: FDA-Public Use
  Company Number: JP-ROCHE-1204786

PATIENT
  Age: 75 Year
  Sex: Male
  Weight: 53 kg

DRUGS (8)
  1. ALTEPLASE [Suspect]
     Indication: THROMBOTIC CEREBRAL INFARCTION
     Route: 040
     Dates: start: 20110807, end: 20110807
  2. RADICUT [Suspect]
     Indication: THROMBOTIC CEREBRAL INFARCTION
     Route: 041
     Dates: start: 20110807, end: 20110816
  3. GLYCEOL [Concomitant]
     Route: 065
     Dates: start: 20110807, end: 20110815
  4. HEPARIN SODIUM [Concomitant]
     Route: 065
     Dates: start: 20110808, end: 20110815
  5. CLOPIDOGREL [Concomitant]
     Route: 048
     Dates: start: 20110811, end: 20110818
  6. PLETAAL [Concomitant]
     Route: 048
     Dates: start: 20110818, end: 20110818
  7. ASPIRIN [Concomitant]
     Route: 048
     Dates: start: 20110818, end: 20110818
  8. CRESTOR [Concomitant]
     Route: 048
     Dates: start: 20110809, end: 20110825

REACTIONS (1)
  - Renal impairment [Unknown]
